FAERS Safety Report 6714201-0 (Version None)
Quarter: 2010Q2

REPORT INFORMATION
  Report Type: 
  Country: None (occurrence: None)
  Receive Date: 20100506
  Receipt Date: 20100427
  Transmission Date: 20101027
  Serious: Yes (Other)
  Sender: FDA-Public Use
  Company Number: US-WYE-H14855710

PATIENT
  Sex: Male

DRUGS (2)
  1. EFFEXOR XR [Suspect]
     Dosage: UNKNOWN
  2. ALEVE (CAPLET) [Interacting]
     Dosage: UNKNOWN

REACTIONS (5)
  - DRUG INTERACTION [None]
  - LIP SWELLING [None]
  - PARAESTHESIA ORAL [None]
  - SWELLING FACE [None]
  - SWOLLEN TONGUE [None]
